FAERS Safety Report 8408647 (Version 2)
Quarter: 2014Q2

REPORT INFORMATION
  Report Type: Report from Study
  Country: US (occurrence: US)
  Receive Date: 20111227
  Receipt Date: 20140429
  Transmission Date: 20141212
  Serious: Yes (Other)
  Sender: FDA-Public Use
  Company Number: PHEH2011US03285

PATIENT
  Age: 63 Year
  Sex: Male

DRUGS (25)
  1. GILENYA [Suspect]
     Indication: MULTIPLE SCLEROSIS
     Dosage: 0.5 MG, QD
     Route: 048
     Dates: start: 20110815
  2. GILENYA [Suspect]
     Dosage: 0.5 MG, QD
     Route: 048
  3. AMITRIPTYLINE [Suspect]
     Dosage: 40 MG, QHS
  4. AMPYRA [Suspect]
     Dosage: 10 MG, BID
     Dates: start: 201107
  5. DIMETHYL FUMARATE [Suspect]
  6. COPAXONE [Suspect]
     Indication: MULTIPLE SCLEROSIS
  7. TYSABRI [Suspect]
     Indication: MULTIPLE SCLEROSIS
  8. REBIF [Suspect]
     Indication: MULTIPLE SCLEROSIS
     Dosage: 44 UG, TIW
     Route: 058
  9. REBIF [Suspect]
     Dosage: 44 UG, TIW
     Route: 058
  10. BACLOFEN [Concomitant]
     Dosage: 10 MG, UNK
     Route: 048
  11. FAMPRIDINE [Concomitant]
     Dosage: 10 MG, UNK
     Route: 048
  12. BYSTOLIC [Concomitant]
     Dosage: UNK UKN, UNK
  13. LEXAPRO [Concomitant]
     Dosage: UNK UKN, UNK
  14. FENOFIBRATE [Concomitant]
     Dosage: 145 MG, UNK
  15. TAMSULOSIN [Concomitant]
     Dosage: 0.4 MG, UNK
  16. BENICAR HCT [Concomitant]
     Dosage: UNK UKN, UNK
  17. ZOLPIDEM [Concomitant]
     Dosage: UNK UKN, UNK
  18. VITAMIN D3 [Concomitant]
  19. LOSARTAN HCT [Concomitant]
  20. VENLAFAXIN [Concomitant]
     Dosage: 75 MG, UNK
  21. GABAPENTIN [Concomitant]
  22. HYDROCODONE BITARTRATE AND ACETAMINOPHEN [Concomitant]
  23. METFORMIN HYDROCHLORIDE [Concomitant]
  24. DOCUSATE SODIUM [Concomitant]
  25. TRILEPTAL [Concomitant]

REACTIONS (41)
  - Salivary gland neoplasm [Unknown]
  - Feeling abnormal [Unknown]
  - Insomnia [Unknown]
  - Central nervous system lesion [Unknown]
  - Dysphagia [Unknown]
  - Memory impairment [Unknown]
  - Mean platelet volume decreased [Unknown]
  - Blood glucose increased [Unknown]
  - White blood cell count increased [Unknown]
  - Carbon dioxide increased [Unknown]
  - Urinary incontinence [Unknown]
  - Micturition urgency [Unknown]
  - Urinary retention [Unknown]
  - Pain in extremity [Unknown]
  - Fall [Unknown]
  - Muscular weakness [Unknown]
  - Skin reaction [Unknown]
  - Rash erythematous [Unknown]
  - Blister [Unknown]
  - Pruritus [Unknown]
  - Sensory loss [Unknown]
  - Flat affect [Unknown]
  - Negativism [Unknown]
  - Facial paresis [Unknown]
  - Muscle spasms [Unknown]
  - Diabetes mellitus [Unknown]
  - Hyperlipidaemia [Unknown]
  - Fatigue [Unknown]
  - Gait disturbance [Unknown]
  - Burning sensation [Unknown]
  - Muscle tightness [Unknown]
  - Constipation [Unknown]
  - Frustration [Unknown]
  - Dry mouth [Unknown]
  - Depressed mood [Unknown]
  - Hypertension [Unknown]
  - Visual acuity reduced [Unknown]
  - Vision blurred [Unknown]
  - Back pain [Unknown]
  - Dizziness [Recovering/Resolving]
  - Headache [Not Recovered/Not Resolved]
